FAERS Safety Report 5851688-X (Version None)
Quarter: 2008Q3

REPORT INFORMATION
  Report Type: 
  Country: None (occurrence: None)
  Receive Date: 20080820
  Receipt Date: 20080806
  Transmission Date: 20090109
  Serious: No
  Sender: FDA-Public Use
  Company Number: US-BOEHRINGER INGELHEIM GMBH, GERMANY-2008-BP-10056BP

PATIENT
  Sex: Female
  Weight: 101 kg

DRUGS (15)
  1. AGGRENOX [Suspect]
     Indication: CEREBROVASCULAR ACCIDENT PROPHYLAXIS
     Dosage: 50MG/400MG
     Route: 048
     Dates: start: 20080301, end: 20080528
  2. AGGRENOX [Suspect]
     Indication: TRANSIENT ISCHAEMIC ATTACK
  3. PLAVIX [Concomitant]
  4. ENDOCORT [Concomitant]
  5. LISINOPRIL [Concomitant]
  6. METFORMIN HCL [Concomitant]
  7. ALBUTEROL [Concomitant]
  8. PULMICORT-100 [Concomitant]
  9. LANTUS [Concomitant]
  10. GLIMEPIRIDE [Concomitant]
  11. ACTOS [Concomitant]
  12. MAGNESIUM OXIDE [Concomitant]
  13. PROAIR HFA [Concomitant]
     Route: 055
  14. HUMALOG [Concomitant]
  15. ADVAIR DISKUS 100/50 [Concomitant]

REACTIONS (5)
  - ABDOMINAL PAIN [None]
  - DYSPEPSIA [None]
  - MALAISE [None]
  - NAUSEA [None]
  - VOMITING [None]
